FAERS Safety Report 6598065-4 (Version None)
Quarter: 2010Q1

REPORT INFORMATION
  Report Type: 
  Country: None (occurrence: None)
  Receive Date: 20100216
  Receipt Date: 20100129
  Transmission Date: 20100710
  Serious: Yes (Other)
  Sender: FDA-Public Use
  Company Number: 2010BI004315

PATIENT
  Sex: Male

DRUGS (11)
  1. ZEVALIN [Suspect]
     Indication: B-CELL LYMPHOMA
     Dosage: 1X, IV
     Route: 042
     Dates: start: 20060701, end: 20060701
  2. THIOTEPA [Concomitant]
  3. CYCLOPHOSPHAMIDE [Concomitant]
  4. THYMOGLOBULIN [Concomitant]
  5. CYCLOSPORINE [Concomitant]
  6. METHOTREXATE [Concomitant]
  7. FLUCONAZOLE [Concomitant]
  8. DOXORUBICIN [Concomitant]
  9. VINCRISTINE [Concomitant]
  10. PREDNISONE [Concomitant]
  11. MABTHERA [Concomitant]

REACTIONS (15)
  - APLASIA [None]
  - BACTERIAL INFECTION [None]
  - GRAFT VERSUS HOST DISEASE [None]
  - HAEMOGLOBIN DECREASED [None]
  - HYPOKALAEMIA [None]
  - LUNG NEOPLASM [None]
  - LYMPHOPENIA [None]
  - MUCOSAL NECROSIS [None]
  - MUSCLE NECROSIS [None]
  - NEUTROPENIA [None]
  - OSTEONECROSIS [None]
  - PLATELET COUNT DECREASED [None]
  - PYREXIA [None]
  - SKIN EXFOLIATION [None]
  - ZYGOMYCOSIS [None]
